FAERS Safety Report 16382864 (Version 2)
Quarter: 2019Q3

REPORT INFORMATION
  Report Type: Report from Study
  Country: FR (occurrence: FR)
  Receive Date: 20190603
  Receipt Date: 20190710
  Transmission Date: 20191004
  Serious: Yes (Other)
  Sender: FDA-Public Use
  Company Number: FR-PFIZER INC-2019228692

PATIENT
  Sex: Male
  Weight: 87 kg

DRUGS (10)
  1. TRIPTORELIN ACETATE [Suspect]
     Active Substance: TRIPTORELIN ACETATE
     Dosage: 1125 MG, CYCLIC
     Route: 042
     Dates: start: 20181025, end: 20181025
  2. TRIPTORELIN ACETATE [Suspect]
     Active Substance: TRIPTORELIN ACETATE
     Dosage: 33.75 MG, CYCLIC
     Route: 042
     Dates: start: 201904, end: 201904
  3. ABIRATERONE ACETATE. [Suspect]
     Active Substance: ABIRATERONE ACETATE
     Dosage: 1000 MG, CYCLIC
     Route: 048
     Dates: start: 20181122, end: 20181122
  4. BICALUTAMIDE. [Suspect]
     Active Substance: BICALUTAMIDE
     Dosage: 50 MG, CYCLIC
     Route: 048
     Dates: start: 20181025, end: 20181025
  5. DOCETAXEL. [Suspect]
     Active Substance: DOCETAXEL
     Indication: PROSTATE CANCER
     Dosage: 150 MG, CYCLIC
     Route: 042
     Dates: start: 20181122, end: 20181122
  6. BICALUTAMIDE. [Suspect]
     Active Substance: BICALUTAMIDE
     Dosage: 50 MG, CYCLIC
     Route: 048
     Dates: start: 20181125, end: 20181125
  7. PREDNISONE. [Suspect]
     Active Substance: PREDNISONE
     Dosage: 5 MG, CYCLIC
     Route: 048
     Dates: start: 20181122, end: 20181122
  8. DOCETAXEL. [Suspect]
     Active Substance: DOCETAXEL
     Dosage: 150 MG, CYCLIC
     Route: 042
     Dates: start: 20190307, end: 20190307
  9. PREDNISONE. [Suspect]
     Active Substance: PREDNISONE
     Dosage: 5 MG, CYCLIC
     Route: 048
     Dates: start: 20190502, end: 20190502
  10. ABIRATERONE ACETATE. [Suspect]
     Active Substance: ABIRATERONE ACETATE
     Dosage: 1000 MG, CYCLIC
     Route: 048
     Dates: start: 20180502, end: 20180502

REACTIONS (1)
  - Tendon rupture [Recovered/Resolved with Sequelae]

NARRATIVE: CASE EVENT DATE: 20190502
